FAERS Safety Report 8231152-3 (Version None)
Quarter: 2012Q1

REPORT INFORMATION
  Report Type: 
  Country: None (occurrence: None)
  Receive Date: 20120320
  Receipt Date: 20120307
  Transmission Date: 20120608
  Serious: Yes (Other)
  Sender: FDA-Public Use
  Company Number: 2012SP013122

PATIENT
  Sex: Female

DRUGS (3)
  1. VICTRELIS [Suspect]
     Indication: HEPATITIS C
     Dates: start: 20120201, end: 20120201
  2. REBETOL [Suspect]
     Indication: HEPATITIS C
     Dates: start: 20120101, end: 20120201
  3. PEGINTERFERON ALFA-2B [Suspect]
     Indication: HEPATITIS C
     Dates: start: 20120101, end: 20120201

REACTIONS (3)
  - ANAEMIA [None]
  - BONE MARROW DISORDER [None]
  - CONDITION AGGRAVATED [None]
